FAERS Safety Report 9442959 (Version 1)
Quarter: 2013Q3

REPORT INFORMATION
  Report Type: Spontaneous
  Country: US (occurrence: US)
  Receive Date: 20130806
  Receipt Date: 20130806
  Transmission Date: 20140515
  Serious: No
  Sender: FDA-Public Use
  Company Number: US-BAYER-2013-092668

PATIENT
  Age: 22 Year
  Sex: Female
  Weight: 58.96 kg

DRUGS (2)
  1. ALEVE CAPLET [Suspect]
     Indication: MENORRHAGIA
     Dosage: UNK
     Route: 048
     Dates: start: 201303
  2. ALEVE CAPLET [Suspect]
     Indication: MENORRHAGIA
     Dosage: 5 DF, UNK
     Route: 048
     Dates: start: 20130728

REACTIONS (3)
  - Extra dose administered [None]
  - Inappropriate schedule of drug administration [None]
  - Off label use [None]
